FAERS Safety Report 25137960 (Version 1)
Quarter: 2025Q1

REPORT INFORMATION
  Report Type: Spontaneous
  Country: US (occurrence: US)
  Receive Date: 20250329
  Receipt Date: 20250329
  Transmission Date: 20250408
  Serious: No
  Sender: GLAXOSMITHKLINE
  Company Number: US-GSKCCFUS-Case-02255830_AE-122602

PATIENT
  Sex: Female

DRUGS (3)
  1. ADVAIR DISKUS [Suspect]
     Active Substance: FLUTICASONE PROPIONATE\SALMETEROL XINAFOATE
     Indication: Product used for unknown indication
  2. ADVAIR DISKUS [Suspect]
     Active Substance: FLUTICASONE PROPIONATE\SALMETEROL XINAFOATE
  3. FLUTICASONE PROPIONATE\SALMETEROL XINAFOATE [Suspect]
     Active Substance: FLUTICASONE PROPIONATE\SALMETEROL XINAFOATE
     Indication: Asthma
     Dosage: UNK UNK, BID 100/50

REACTIONS (10)
  - Dyspnoea [Unknown]
  - Chills [Unknown]
  - Tremor [Unknown]
  - Hypoaesthesia [Unknown]
  - Heart rate increased [Unknown]
  - Dry mouth [Unknown]
  - Myalgia [Unknown]
  - Oropharyngeal pain [Unknown]
  - Intentional underdose [Unknown]
  - Drug ineffective [Not Recovered/Not Resolved]
